FAERS Safety Report 23670990 (Version 1)
Quarter: 2024Q1

REPORT INFORMATION
  Report Type: Spontaneous
  Country: US (occurrence: None)
  Receive Date: 20240326
  Receipt Date: 20240326
  Transmission Date: 20240410
  Serious: No
  Sender: FDA-Public Use
  Company Number: US-ROCHE-3423819

PATIENT
  Age: 45 Year
  Sex: Female

DRUGS (15)
  1. EVRYSDI [Suspect]
     Active Substance: RISDIPLAM
     Indication: Spinal muscular atrophy
     Route: 048
     Dates: start: 20221118
  2. BACLOFEN [Concomitant]
     Active Substance: BACLOFEN
  3. FIBERCON [Concomitant]
     Active Substance: CALCIUM POLYCARBOPHIL
  4. GABAPENTIN [Concomitant]
     Active Substance: GABAPENTIN
  5. LOPERAMIDE [Concomitant]
     Active Substance: LOPERAMIDE
  6. CLARITIN [Concomitant]
     Active Substance: LORATADINE
  7. LORAZEPAM [Concomitant]
     Active Substance: LORAZEPAM
  8. MELOXICAM [Concomitant]
     Active Substance: MELOXICAM
  9. BIOFREEZE (UNITED STATES) [Concomitant]
  10. IRON [Concomitant]
     Active Substance: IRON
  11. OLOPATADINE [Concomitant]
     Active Substance: OLOPATADINE
  12. OMEPRAZOLE [Concomitant]
     Active Substance: OMEPRAZOLE
  13. PROPRANOLOL [Concomitant]
     Active Substance: PROPRANOLOL HYDROCHLORIDE
  14. TOPIRAMATE [Concomitant]
     Active Substance: TOPIRAMATE
  15. VENLAFAXINE HYDROCHLORIDE [Concomitant]
     Active Substance: VENLAFAXINE HYDROCHLORIDE

REACTIONS (4)
  - Gastrointestinal disorder [Unknown]
  - Asthenia [Unknown]
  - Abdominal pain [Unknown]
  - Diarrhoea [Unknown]

NARRATIVE: CASE EVENT DATE: 20230420
